FAERS Safety Report 19371421 (Version 2)
Quarter: 2021Q3

REPORT INFORMATION
  Report Type: Spontaneous
  Country: US (occurrence: US)
  Receive Date: 20210603
  Receipt Date: 20210701
  Transmission Date: 20211014
  Serious: Yes (Hospitalization)
  Sender: FDA-Public Use
  Company Number: US-SA-2021SA177859

PATIENT
  Age: 32 Year
  Sex: Female

DRUGS (1)
  1. FABRAZYME [Suspect]
     Active Substance: AGALSIDASE BETA
     Indication: FABRY^S DISEASE
     Dosage: 65 MG, QOW
     Route: 042
     Dates: start: 20170302

REACTIONS (2)
  - Labour pain [Unknown]
  - Exposure during pregnancy [Unknown]

NARRATIVE: CASE EVENT DATE: 2020
